FAERS Safety Report 18265207 (Version 1)
Quarter: 2020Q3

REPORT INFORMATION
  Report Type: Spontaneous
  Country: US (occurrence: US)
  Receive Date: 20200914
  Receipt Date: 20200914
  Transmission Date: 20201103
  Serious: Yes (Death, Other)
  Sender: FDA-Public Use
  Company Number: US-PURDUE-USA-2020-0166073

PATIENT
  Age: 65 Year
  Sex: Male

DRUGS (4)
  1. HYDROCODONE BITARTRATE AND ACETAMINOPHEN [Suspect]
     Active Substance: ACETAMINOPHEN\HYDROCODONE BITARTRATE
     Indication: PRODUCT USED FOR UNKNOWN INDICATION
     Route: 048
  2. OXYCODONE HCL TABLETS (RHODES 91?490) [Suspect]
     Active Substance: OXYCODONE HYDROCHLORIDE
     Indication: PRODUCT USED FOR UNKNOWN INDICATION
     Route: 048
  3. DILAUDID [Suspect]
     Active Substance: HYDROMORPHONE HYDROCHLORIDE
     Indication: PRODUCT USED FOR UNKNOWN INDICATION
     Route: 048
  4. OXYCONTIN [Suspect]
     Active Substance: OXYCODONE HYDROCHLORIDE
     Indication: PRODUCT USED FOR UNKNOWN INDICATION
     Route: 048

REACTIONS (16)
  - Brain oedema [Fatal]
  - Dependence [Unknown]
  - Overdose [Unknown]
  - Hypertension [Fatal]
  - Toxicity to various agents [Fatal]
  - Arteriosclerosis [Fatal]
  - Arteriosclerosis coronary artery [Fatal]
  - Nephrosclerosis [Fatal]
  - Contusion [Fatal]
  - Cardiomegaly [Fatal]
  - Skin abrasion [Fatal]
  - Obesity [Fatal]
  - Anxiety [Unknown]
  - Dilatation ventricular [Fatal]
  - Pulmonary oedema [Fatal]
  - Aortic arteriosclerosis [Fatal]

NARRATIVE: CASE EVENT DATE: 20180303
